FAERS Safety Report 6779459-0 (Version None)
Quarter: 2010Q2

REPORT INFORMATION
  Report Type: 
  Country: None (occurrence: None)
  Receive Date: 20100618
  Receipt Date: 20100609
  Transmission Date: 20101027
  Serious: Yes (Other)
  Sender: FDA-Public Use
  Company Number: FR-SANOFI-AVENTIS-2010SA034400

PATIENT

DRUGS (6)
  1. FLUDARABINE PHOSPHATE [Suspect]
     Indication: NEUROPATHY PERIPHERAL
     Route: 065
  2. FLUDARABINE PHOSPHATE [Suspect]
     Route: 065
  3. RITUXIMAB [Suspect]
     Indication: NEUROPATHY PERIPHERAL
     Route: 065
  4. RITUXIMAB [Suspect]
     Route: 065
  5. CYCLOPHOSPHAMIDE [Suspect]
     Indication: NEUROPATHY PERIPHERAL
     Route: 065
  6. CYCLOPHOSPHAMIDE [Suspect]
     Route: 065

REACTIONS (1)
  - SALIVARY GLAND CANCER [None]
